FAERS Safety Report 5328191-9 (Version None)
Quarter: 2007Q2

REPORT INFORMATION
  Report Type: 
  Country: None (occurrence: None)
  Receive Date: 20070514
  Receipt Date: 20070427
  Transmission Date: 20071010
  Serious: Yes (Hospitalization)
  Sender: FDA-Public Use
  Company Number: 2007000767

PATIENT
  Age: 66 Year
  Sex: Male

DRUGS (5)
  1. ERLOTINIB (TABLET) [Suspect]
     Indication: NON-SMALL CELL LUNG CANCER
     Dosage: QD, ORAL
     Route: 048
     Dates: start: 20070320, end: 20070402
  2. GEMCITABINE [Suspect]
     Indication: NON-SMALL CELL LUNG CANCER
     Dosage: 1820 MG Q2W, INTRAVENOUS
     Route: 042
     Dates: start: 20061121
  3. GEMCITABINE [Suspect]
     Indication: NON-SMALL CELL LUNG CANCER
     Dosage: 1820 MG Q2W, INTRAVENOUS
     Route: 042
     Dates: start: 20070410
  4. CARBOPLATIN [Suspect]
     Indication: NON-SMALL CELL LUNG CANCER
     Dosage: 410 MG Q28 DAY, INTRAVENOUS
     Route: 042
     Dates: start: 20070410
  5. LEVOFLOXACIN [Concomitant]

REACTIONS (3)
  - ANAEMIA [None]
  - ASTHENIA [None]
  - DIZZINESS [None]
